FAERS Safety Report 24750620 (Version 1)
Quarter: 2024Q4

REPORT INFORMATION
  Report Type: Spontaneous
  Country: GB (occurrence: GB)
  Receive Date: 20241218
  Receipt Date: 20241218
  Transmission Date: 20250115
  Serious: Yes (Life-Threatening, Hospitalization, Disabling, Other)
  Sender: CIPLA
  Company Number: GB-MHRA-MED-202412041332451430-RZFQM

PATIENT

DRUGS (5)
  1. FINASTERIDE [Suspect]
     Active Substance: FINASTERIDE
     Indication: Adverse drug reaction
     Dosage: 0.25/0.33MG EVERY OTHER DAY/3 TIMES A WEEK
     Route: 065
     Dates: start: 20240920, end: 20241120
  2. FEXOFENADINE [Concomitant]
     Active Substance: FEXOFENADINE HYDROCHLORIDE
     Indication: Adverse drug reaction
     Dosage: UNK
     Route: 065
     Dates: start: 20241020, end: 20241027
  3. PREDNISONE [Concomitant]
     Active Substance: PREDNISONE
     Indication: Adverse drug reaction
     Dosage: UNK
     Route: 065
     Dates: start: 20241020, end: 20241027
  4. EPINEPHRINE [Concomitant]
     Active Substance: EPINEPHRINE
     Indication: Adverse drug reaction
     Dosage: UNK
     Route: 065
     Dates: start: 20241020, end: 20241020
  5. METOPROLOL [Concomitant]
     Active Substance: METOPROLOL
     Indication: Heart rate
     Dosage: UNK
     Route: 065
     Dates: start: 20241028, end: 20241104

REACTIONS (10)
  - Tachycardia [Not Recovered/Not Resolved]
  - Tremor [Recovered/Resolved with Sequelae]
  - Chest pain [Not Recovered/Not Resolved]
  - Insomnia [Not Recovered/Not Resolved]
  - Confusional state [Not Recovered/Not Resolved]
  - Brain fog [Not Recovered/Not Resolved]
  - Hypoaesthesia [Recovered/Resolved with Sequelae]
  - Dyspnoea [Not Recovered/Not Resolved]
  - Change of bowel habit [Not Recovered/Not Resolved]
  - Erectile dysfunction [Recovered/Resolved with Sequelae]

NARRATIVE: CASE EVENT DATE: 20241006
